FAERS Safety Report 8613150-0 (Version None)
Quarter: 2012Q3

REPORT INFORMATION
  Report Type: 
  Country: None (occurrence: None)
  Receive Date: 20120822
  Receipt Date: 20120731
  Transmission Date: 20120928
  Serious: Yes (Hospitalization)
  Sender: FDA-Public Use
  Company Number: JP-009507513-1208JPN000318

PATIENT

DRUGS (13)
  1. [THERAPY UNSPECIFIED] [Concomitant]
     Indication: HEPATITIS C
     Route: 048
  2. REBETOL [Suspect]
     Indication: HEPATITIS C
     Route: 048
     Dates: start: 20120530, end: 20120613
  3. TELAVIC [Suspect]
     Indication: HEPATITIS C
     Route: 048
     Dates: start: 20120530, end: 20120719
  4. URSO 250 [Concomitant]
     Indication: HEPATITIS C
     Route: 048
  5. FERRUM (FERROUS FUMARATE) [Concomitant]
     Indication: ANAEMIA
     Route: 048
  6. MIRCERA [Concomitant]
     Dosage: 100 UNK, ONCE
     Route: 058
     Dates: start: 20120614, end: 20120614
  7. PEG-INTRON [Suspect]
     Indication: HEPATITIS C
     Dosage: 1.5MCG/KG/WEEK
     Route: 058
     Dates: start: 20120530, end: 20120613
  8. REBETOL [Suspect]
     Route: 048
     Dates: start: 20120614, end: 20120719
  9. NOVOLIN R [Concomitant]
     Indication: DIABETES MELLITUS
     Dosage: 22U/DAY
     Route: 058
     Dates: start: 20120601
  10. MIRCERA [Concomitant]
     Indication: ANAEMIA
     Dosage: 100 UNK, ONCE
     Route: 058
     Dates: start: 20120526, end: 20120526
  11. PEG-INTRON [Suspect]
     Dosage: 1MCG/KG/WEEK
     Route: 058
     Dates: start: 20120621, end: 20120628
  12. GLYCYRON [Concomitant]
     Indication: HEPATITIS C
     Route: 048
  13. PEG-INTRON [Suspect]
     Dosage: 1.5MCG/KG/WEEK
     Route: 058
     Dates: start: 20120705, end: 20120712

REACTIONS (1)
  - DRUG ERUPTION [None]
